FAERS Safety Report 21690376 (Version 1)
Quarter: 2022Q4

REPORT INFORMATION
  Report Type: Spontaneous
  Country: IL (occurrence: IL)
  Receive Date: 20221206
  Receipt Date: 20221206
  Transmission Date: 20230112
  Serious: No
  Sender: FDA-Public Use
  Company Number: IL-EMERGENT BIOSOLUTIONS,-22000156

PATIENT

DRUGS (1)
  1. CNJ-016 [Suspect]
     Active Substance: HUMAN VACCINIA VIRUS IMMUNE GLOBULIN
     Indication: Monkeypox
     Route: 065

REACTIONS (1)
  - Off label use [Recovered/Resolved]
